FAERS Safety Report 10912497 (Version 1)
Quarter: 2015Q1

REPORT INFORMATION
  Report Type: Spontaneous
  Country: US (occurrence: None)
  Receive Date: 20150312
  Receipt Date: 20150312
  Transmission Date: 20150721
  Serious: Yes (Other)
  Sender: FDA-Public Use
  Company Number: US-2015CRT000005

PATIENT
  Age: 37 Year
  Sex: Female
  Weight: 67.59 kg

DRUGS (10)
  1. INVOKANA [Concomitant]
     Active Substance: CANAGLIFLOZIN
  2. ANTARA [Concomitant]
     Active Substance: FENOFIBRATE
  3. NEXIUM [Concomitant]
     Active Substance: ESOMEPRAZOLE MAGNESIUM
  4. ABILIFY [Concomitant]
     Active Substance: ARIPIPRAZOLE
  5. LISINOPRIL. [Concomitant]
     Active Substance: LISINOPRIL
  6. VITAMIN D [Concomitant]
     Active Substance: CHOLECALCIFEROL
  7. TRAZODONE [Concomitant]
     Active Substance: TRAZODONE HYDROCHLORIDE
  8. CRESTOR [Concomitant]
     Active Substance: ROSUVASTATIN CALCIUM
  9. CYMBALTA [Concomitant]
     Active Substance: DULOXETINE HYDROCHLORIDE
  10. KORLYM [Suspect]
     Active Substance: MIFEPRISTONE
     Indication: CUSHING^S SYNDROME
     Route: 048
     Dates: start: 20131212

REACTIONS (3)
  - Foot operation [None]
  - Joint swelling [None]
  - Peripheral swelling [None]

NARRATIVE: CASE EVENT DATE: 201407
